FAERS Safety Report 6106568-1 (Version None)
Quarter: 2009Q1

REPORT INFORMATION
  Report Type: 
  Country: None (occurrence: None)
  Receive Date: 20090304
  Receipt Date: 20090223
  Transmission Date: 20090719
  Serious: Yes (Hospitalization)
  Sender: FDA-Public Use
  Company Number: OMPQ-NO-0902S-0121

PATIENT
  Age: 57 Year
  Sex: Female

DRUGS (1)
  1. OMNIPAQUE 300 [Suspect]
     Indication: DRUG USE FOR UNKNOWN INDICATION
     Dosage: NR, SINGLE DOSE, IV
     Route: 042
     Dates: start: 20090123, end: 20090123

REACTIONS (2)
  - INJECTION SITE EXTRAVASATION [None]
  - INJECTION SITE OEDEMA [None]
